FAERS Safety Report 7103737-9 (Version None)
Quarter: 2010Q4

REPORT INFORMATION
  Report Type: 
  Country: None (occurrence: None)
  Receive Date: 20101115
  Receipt Date: 20101103
  Transmission Date: 20110411
  Serious: Yes (Other)
  Sender: FDA-Public Use
  Company Number: FR-GENENTECH-251796

PATIENT
  Age: 42 Year
  Sex: Male

DRUGS (2)
  1. SOMATROPIN [Suspect]
     Indication: GROWTH HORMONE DEFICIENCY
     Dosage: 0.4 MG, QD
     Route: 058
     Dates: start: 20060305, end: 20061013
  2. THYROXIN [Concomitant]
     Indication: BLOOD THYROID STIMULATING HORMONE DECREASED
     Dosage: UNK, UNK
     Route: 048

REACTIONS (1)
  - PITUITARY TUMOUR [None]
